FAERS Safety Report 25167826 (Version 1)
Quarter: 2025Q2

REPORT INFORMATION
  Report Type: Spontaneous
  Country: US (occurrence: None)
  Receive Date: 20250405
  Receipt Date: 20250405
  Transmission Date: 20250716
  Serious: Yes (Hospitalization)
  Sender: FDA-CTU
  Company Number: None

PATIENT
  Age: 58 Year
  Sex: Male
  Weight: 101.25 kg

DRUGS (10)
  1. OZEMPIC [Suspect]
     Active Substance: SEMAGLUTIDE
     Indication: Obesity
     Route: 058
     Dates: start: 20240401, end: 20250402
  2. OZEMPIC [Suspect]
     Active Substance: SEMAGLUTIDE
     Indication: Diabetes mellitus
  3. OZEMPIC [Suspect]
     Active Substance: SEMAGLUTIDE
     Indication: Diabetes mellitus
  4. OZEMPIC [Suspect]
     Active Substance: SEMAGLUTIDE
     Indication: Diabetes mellitus
  5. JARDIANCE [Concomitant]
     Active Substance: EMPAGLIFLOZIN
  6. VITAMINS [Concomitant]
     Active Substance: VITAMINS
     Route: 058
     Dates: start: 20240401, end: 20250402
  7. WELLBUTRIN [Concomitant]
     Active Substance: BUPROPION HYDROCHLORIDE
  8. LAMOTRIGINE [Concomitant]
     Active Substance: LAMOTRIGINE
  9. VITAMIN D [Concomitant]
     Active Substance: VITAMIN D NOS
  10. VITAMIN B COMPLEX [Concomitant]
     Active Substance: CYANOCOBALAMIN\DEXPANTHENOL\NIACINAMIDE\PYRIDOXINE HYDROCHLORIDE\RIBOFLAVIN 5^-PHOSPHATE SODIUM\THIA

REACTIONS (3)
  - Impaired gastric emptying [None]
  - Infrequent bowel movements [None]
  - Abdominal distension [None]

NARRATIVE: CASE EVENT DATE: 20250403
